FAERS Safety Report 19059136 (Version 1)
Quarter: 2021Q1

REPORT INFORMATION
  Report Type: Spontaneous
  Country: US (occurrence: US)
  Receive Date: 20210326
  Receipt Date: 20210326
  Transmission Date: 20210420
  Serious: Yes (Other)
  Sender: FDA-Public Use
  Company Number: US-BIOGEN-2021BI00993514

PATIENT
  Sex: Female

DRUGS (9)
  1. ZOLPIDEM [Concomitant]
     Active Substance: ZOLPIDEM TARTRATE
     Indication: PRODUCT USED FOR UNKNOWN INDICATION
     Route: 065
     Dates: start: 202007
  2. BACTRIM [Concomitant]
     Active Substance: SULFAMETHOXAZOLE\TRIMETHOPRIM
     Indication: CYSTITIS
     Route: 065
  3. TECFIDERA [Suspect]
     Active Substance: DIMETHYL FUMARATE
     Indication: MULTIPLE SCLEROSIS
     Route: 065
     Dates: start: 20180101, end: 20191201
  4. AUBAGIO [Suspect]
     Active Substance: TERIFLUNOMIDE
     Indication: MULTIPLE SCLEROSIS
     Route: 048
     Dates: start: 20151012
  5. METHOTREXATE. [Suspect]
     Active Substance: METHOTREXATE
     Indication: FOOT FRACTURE
     Route: 065
  6. ELIQUIS [Concomitant]
     Active Substance: APIXABAN
     Indication: PRODUCT USED FOR UNKNOWN INDICATION
     Route: 065
  7. VITAMIN D [Concomitant]
     Active Substance: VITAMIN D NOS
     Indication: PRODUCT USED FOR UNKNOWN INDICATION
     Route: 065
  8. CALCIUM [Concomitant]
     Active Substance: CALCIUM
     Indication: PRODUCT USED FOR UNKNOWN INDICATION
     Route: 065
  9. LOSARTAN. [Concomitant]
     Active Substance: LOSARTAN
     Indication: PRODUCT USED FOR UNKNOWN INDICATION
     Route: 065

REACTIONS (27)
  - Haemorrhage [Unknown]
  - Intervertebral disc protrusion [Unknown]
  - Multiple sclerosis relapse [Unknown]
  - Dyskinesia [Unknown]
  - Rhinorrhoea [Unknown]
  - Rotator cuff syndrome [Unknown]
  - Injury [Unknown]
  - Muscular weakness [Unknown]
  - Sensory loss [Unknown]
  - Lacrimation increased [Unknown]
  - Vitamin D decreased [Unknown]
  - Insomnia [Unknown]
  - Arthralgia [Unknown]
  - Cellulitis [Unknown]
  - Clavicle fracture [Unknown]
  - Ankle fracture [Unknown]
  - Confusional state [Unknown]
  - Dyspepsia [Unknown]
  - Humerus fracture [Unknown]
  - Foot fracture [Unknown]
  - Lower respiratory tract infection fungal [Unknown]
  - Memory impairment [Unknown]
  - Asthenia [Unknown]
  - Inflammation [Unknown]
  - Seasonal allergy [Unknown]
  - Head injury [Unknown]
  - Hepatic enzyme increased [Unknown]

NARRATIVE: CASE EVENT DATE: 2019
